FAERS Safety Report 13906113 (Version 5)
Quarter: 2021Q1

REPORT INFORMATION
  Report Type: Report from Study
  Country: US (occurrence: US)
  Receive Date: 20170825
  Receipt Date: 20210314
  Transmission Date: 20210419
  Serious: Yes (Hospitalization, Other)
  Sender: FDA-Public Use
  Company Number: US-SA-2017SA129905

PATIENT
  Age: 50 Year
  Sex: Female
  Weight: 61 kg

DRUGS (1)
  1. ALEMTUZUMAB [Suspect]
     Active Substance: ALEMTUZUMAB
     Indication: MULTIPLE SCLEROSIS
     Dosage: 12 MG,QD
     Route: 041
     Dates: start: 20170626, end: 20170627

REACTIONS (25)
  - Acute pulmonary oedema [Recovered/Resolved]
  - Irritable bowel syndrome [Unknown]
  - Pneumonia [Unknown]
  - Amnesia [Recovered/Resolved]
  - Pruritus [Unknown]
  - Dysarthria [Unknown]
  - Product dose omission issue [Unknown]
  - Migraine [Unknown]
  - Depression [Unknown]
  - Nausea [Unknown]
  - Peripheral swelling [Unknown]
  - Acute respiratory failure [Recovered/Resolved]
  - Feeling abnormal [Unknown]
  - Renal disorder [Unknown]
  - Feeling abnormal [Recovered/Resolved]
  - Hypoxia [Unknown]
  - Pain [Unknown]
  - Blood pressure decreased [Unknown]
  - Anaphylactic reaction [Recovered/Resolved]
  - Diarrhoea [Unknown]
  - Loss of consciousness [Recovered/Resolved]
  - Psoriasis [Unknown]
  - Anaemia of chronic disease [Unknown]
  - Asthenia [Unknown]
  - Cerebral disorder [Unknown]

NARRATIVE: CASE EVENT DATE: 2017
